FAERS Safety Report 6719704-0 (Version None)
Quarter: 2010Q2

REPORT INFORMATION
  Report Type: 
  Country: None (occurrence: None)
  Receive Date: 20100511
  Receipt Date: 20100413
  Transmission Date: 20101027
  Serious: Yes (Death)
  Sender: FDA-Public Use
  Company Number: PHHY2010US26128

PATIENT
  Sex: Female

DRUGS (1)
  1. PROLEUKIN [Suspect]
     Dosage: UNK

REACTIONS (1)
  - DEATH [None]
